FAERS Safety Report 8309407-3 (Version None)
Quarter: 2012Q2

REPORT INFORMATION
  Report Type: 
  Country: None (occurrence: None)
  Receive Date: 20120424
  Receipt Date: 20120424
  Transmission Date: 20120825
  Serious: Yes (Hospitalization)
  Sender: FDA-Public Use
  Company Number: None

PATIENT
  Sex: Female
  Weight: 71.2147 kg

DRUGS (2)
  1. TRAMADOL HCL [Suspect]
     Indication: KNEE ARTHROPLASTY
     Dosage: 1-2 TABS 4-6 HRS
     Dates: start: 20120308, end: 20120319
  2. TRAMADOL HCL [Suspect]
     Indication: PROCEDURAL PAIN
     Dosage: 1-2 TABS 4-6 HRS
     Dates: start: 20120308, end: 20120319

REACTIONS (4)
  - DIZZINESS [None]
  - ASTHENIA [None]
  - TREMOR [None]
  - NAUSEA [None]
